FAERS Safety Report 9695450 (Version 1)
Quarter: 2013Q4

REPORT INFORMATION
  Report Type: Spontaneous
  Country: US (occurrence: None)
  Receive Date: 20131118
  Receipt Date: 20131118
  Transmission Date: 20140711
  Serious: Yes (Other)
  Sender: FDA-Public Use
  Company Number: None

PATIENT
  Age: 24 Year
  Sex: Male
  Weight: 65.77 kg

DRUGS (1)
  1. KEPPRA XR [Suspect]
     Indication: EPILEPSY

REACTIONS (5)
  - Dyspepsia [None]
  - Abdominal distension [None]
  - Convulsion [None]
  - Product substitution issue [None]
  - Product quality issue [None]
